FAERS Safety Report 25053099 (Version 1)
Quarter: 2025Q1

REPORT INFORMATION
  Report Type: Spontaneous
  Country: US (occurrence: US)
  Receive Date: 20250307
  Receipt Date: 20250307
  Transmission Date: 20250409
  Serious: No
  Sender: SANOFI AVENTIS
  Company Number: US-SA-2025SA061180

PATIENT
  Age: 58 Year
  Sex: Male

DRUGS (14)
  1. DUPIXENT [Suspect]
     Active Substance: DUPILUMAB
     Indication: Nasal polyps
     Dosage: 300 MG, QOW
     Route: 058
     Dates: start: 20210917
  2. ALBUTEROL SULFATE [Concomitant]
     Active Substance: ALBUTEROL SULFATE
  3. AMLODIPINE [Concomitant]
     Active Substance: AMLODIPINE BESYLATE
  4. BREO ELLIPTA [Concomitant]
     Active Substance: FLUTICASONE FUROATE\VILANTEROL TRIFENATATE
  5. ELIQUIS [Concomitant]
     Active Substance: APIXABAN
  6. EPINEPHRINE [Concomitant]
     Active Substance: EPINEPHRINE
  7. GABAPENTIN [Concomitant]
     Active Substance: GABAPENTIN
  8. METFORMIN [Concomitant]
     Active Substance: METFORMIN HYDROCHLORIDE
  9. METHYLPREDNISOLONE [Concomitant]
     Active Substance: METHYLPREDNISOLONE
  10. MORPHINE SULFATE [Concomitant]
     Active Substance: MORPHINE SULFATE
  11. OMEPRAZOLE [Concomitant]
     Active Substance: OMEPRAZOLE
  12. OXYCODONE [Concomitant]
     Active Substance: OXYCODONE
  13. PREDNISONE [Concomitant]
     Active Substance: PREDNISONE
  14. XHANCE [Concomitant]
     Active Substance: FLUTICASONE PROPIONATE

REACTIONS (2)
  - Infection [Unknown]
  - Inappropriate schedule of product administration [Unknown]

NARRATIVE: CASE EVENT DATE: 20250221
